FAERS Safety Report 10233986 (Version 1)
Quarter: 2014Q2

REPORT INFORMATION
  Report Type: Spontaneous
  Country: US (occurrence: US)
  Receive Date: 20140612
  Receipt Date: 20140612
  Transmission Date: 20141212
  Serious: No
  Sender: FDA-Public Use
  Company Number: US-ASTRAZENECA-2014SE39016

PATIENT
  Age: 782 Month
  Sex: Female
  Weight: 75.3 kg

DRUGS (2)
  1. NEXIUM [Suspect]
     Indication: BARRETT^S OESOPHAGUS
     Route: 048
     Dates: start: 201101, end: 2014
  2. OMEPRAZOLE PRESCRIPTION [Suspect]
     Indication: BARRETT^S OESOPHAGUS
     Dosage: UNKNOWN DAILY
     Route: 048

REACTIONS (5)
  - Vomiting [Recovered/Resolved]
  - Weight decreased [Unknown]
  - Expired product administered [Recovered/Resolved]
  - Drug dose omission [Unknown]
  - Off label use [Unknown]
